FAERS Safety Report 11390479 (Version 1)
Quarter: 2015Q3

REPORT INFORMATION
  Report Type: Spontaneous
  Country: US (occurrence: US)
  Receive Date: 20150818
  Receipt Date: 20150818
  Transmission Date: 20151125
  Serious: No
  Sender: FDA-Public Use
  Company Number: US-ROCHE-1405721

PATIENT
  Sex: Female

DRUGS (3)
  1. RIBAVIRIN. [Suspect]
     Active Substance: RIBAVIRIN
     Indication: CHRONIC HEPATITIS C
     Dosage: DIVIDED DOSES: 600/400
     Route: 065
     Dates: start: 20140507
  2. SOVALDI [Suspect]
     Active Substance: SOFOSBUVIR
     Indication: CHRONIC HEPATITIS C
     Route: 065
     Dates: start: 20140507
  3. PEGASYS [Suspect]
     Active Substance: PEGINTERFERON ALFA-2A
     Indication: CHRONIC HEPATITIS C
     Route: 058
     Dates: start: 20140507

REACTIONS (8)
  - Feeling hot [Unknown]
  - Nausea [Unknown]
  - Hypoaesthesia [Unknown]
  - Wrong technique in product usage process [Unknown]
  - Myalgia [Unknown]
  - Nervousness [Unknown]
  - Vision blurred [Recovered/Resolved]
  - Anxiety [Unknown]
